FAERS Safety Report 10960615 (Version 2)
Quarter: 2015Q2

REPORT INFORMATION
  Report Type: Spontaneous
  Country: FR (occurrence: FR)
  Receive Date: 20150327
  Receipt Date: 20150423
  Transmission Date: 20150821
  Serious: Yes (Hospitalization)
  Sender: FDA-Public Use
  Company Number: FR-SA-2015SA036827

PATIENT
  Age: 71 Year
  Sex: Female

DRUGS (6)
  1. ISOPTIN [Concomitant]
     Active Substance: VERAPAMIL HYDROCHLORIDE
     Indication: HYPERTENSION
     Dosage: START DATE: AUIG-2013/SEP-2013
     Route: 048
     Dates: start: 2013
  2. ZYLORIC [Concomitant]
     Active Substance: ALLOPURINOL
     Indication: GOUT
     Dosage: 200 MG
     Route: 048
     Dates: start: 201201, end: 201501
  3. OGASTORO [Concomitant]
     Active Substance: LANSOPRAZOLE
     Dosage: 15 MG ORODISPERSIBLE TABLET
     Route: 048
  4. APROVEL [Suspect]
     Active Substance: IRBESARTAN
     Indication: HYPERTENSION
     Route: 048
     Dates: start: 201308, end: 201401
  5. HYPERIUM [Concomitant]
     Active Substance: RILMENIDINE PHOSPHATE
     Indication: HYPERTENSION
     Dosage: 1 MG
     Route: 048
     Dates: start: 201308
  6. ARAVA [Suspect]
     Active Substance: LEFLUNOMIDE
     Indication: RHEUMATIC DISORDER
     Route: 048
     Dates: start: 201306, end: 20131002

REACTIONS (3)
  - Vasculitis [Not Recovered/Not Resolved]
  - Neuropathy peripheral [Recovering/Resolving]
  - Paralysis [Not Recovered/Not Resolved]

NARRATIVE: CASE EVENT DATE: 201312
